FAERS Safety Report 6259582-X (Version None)
Quarter: 2009Q3

REPORT INFORMATION
  Report Type: 
  Country: None (occurrence: None)
  Receive Date: 20090708
  Receipt Date: 20090707
  Transmission Date: 20100115
  Serious: Yes (Congenital Anomaly, Other)
  Sender: FDA-Public Use
  Company Number: US-PFIZER INC-2009213833

PATIENT
  Sex: Female

DRUGS (3)
  1. XANAX XR [Suspect]
     Indication: PANIC DISORDER
     Dosage: 1 MG, 1X/DAY
     Route: 064
  2. XANAX XR [Suspect]
     Indication: AGORAPHOBIA
  3. PAXIL [Concomitant]
     Route: 064

REACTIONS (4)
  - CHONDRODYSTROPHY [None]
  - DRUG EXPOSURE DURING PREGNANCY [None]
  - LOWER LIMB FRACTURE [None]
  - PREMATURE BABY [None]
